FAERS Safety Report 8295018-5 (Version None)
Quarter: 2012Q2

REPORT INFORMATION
  Report Type: 
  Country: None (occurrence: None)
  Receive Date: 20120418
  Receipt Date: 20120412
  Transmission Date: 20120825
  Serious: Yes (Other)
  Sender: FDA-Public Use
  Company Number: US-ELI_LILLY_AND_COMPANY-US201204004468

PATIENT
  Age: 62 Year
  Sex: Male

DRUGS (3)
  1. ASPIRIN [Concomitant]
     Dosage: 81 MG, UNK
  2. CIALIS [Suspect]
     Indication: PROMOTION OF WOUND HEALING
     Dosage: 5 MG, QD
     Dates: start: 20120320
  3. MULTI-VITAMIN [Concomitant]
     Dosage: 1 DF, QD

REACTIONS (2)
  - PROSTATECTOMY [None]
  - OFF LABEL USE [None]
